FAERS Safety Report 10110473 (Version 2)
Quarter: 2014Q2

REPORT INFORMATION
  Report Type: Report from Study
  Country: CA (occurrence: CA)
  Receive Date: 20140425
  Receipt Date: 20140425
  Transmission Date: 20141212
  Serious: Yes (Death)
  Sender: FDA-Public Use
  Company Number: PHHY2014CA038110

PATIENT
  Age: 79 Year
  Sex: Female

DRUGS (6)
  1. SANDOSTATIN LAR [Suspect]
     Indication: MALIGNANT PERITONEAL NEOPLASM
     Dosage: 20 MG, QMO
     Route: 030
     Dates: start: 20140325, end: 20140325
  2. SANDOSTATIN LAR [Suspect]
     Indication: INTESTINAL OBSTRUCTION
  3. SANDOSTATIN LAR [Suspect]
     Indication: OFF LABEL USE
  4. SANDOSTATIN (OCTREOTIDE ACETATE) [Suspect]
     Indication: MALIGNANT PERITONEAL NEOPLASM
     Dosage: 100 UG, TID
     Route: 058
     Dates: start: 20140308, end: 201403
  5. SANDOSTATIN (OCTREOTIDE ACETATE) [Suspect]
     Indication: INTESTINAL OBSTRUCTION
  6. SANDOSTATIN (OCTREOTIDE ACETATE) [Suspect]
     Indication: OFF LABEL USE

REACTIONS (2)
  - Death [Fatal]
  - Blood pressure diastolic increased [Unknown]
